FAERS Safety Report 23042012 (Version 1)
Quarter: 2023Q4

REPORT INFORMATION
  Report Type: Report from Study
  Country: GB (occurrence: GB)
  Receive Date: 20231008
  Receipt Date: 20231008
  Transmission Date: 20240109
  Serious: Yes (Other)
  Sender: FDA-Public Use
  Company Number: GB-002147023-NVSC2019GB063904

PATIENT
  Sex: Male

DRUGS (1)
  1. OMNITROPE [Suspect]
     Active Substance: SOMATROPIN
     Indication: Product used for unknown indication
     Dosage: 1.3 MG, QD
     Route: 058
     Dates: start: 20151211

REACTIONS (3)
  - Autism spectrum disorder [Unknown]
  - Product dose omission issue [Unknown]
  - Incorrect dose administered by device [Unknown]
